FAERS Safety Report 7016662-9 (Version None)
Quarter: 2010Q3

REPORT INFORMATION
  Report Type: 
  Country: None (occurrence: None)
  Receive Date: 20100927
  Receipt Date: 20100921
  Transmission Date: 20110219
  Serious: No
  Sender: FDA-Public Use
  Company Number: US-B.I. PHARMACEUTICALS,INC./RIDGEFIELD-2010-BP-10792BP

PATIENT
  Sex: Female

DRUGS (3)
  1. SPIRIVA [Suspect]
     Indication: CHRONIC OBSTRUCTIVE PULMONARY DISEASE
     Dosage: 18 MCG
     Route: 055
     Dates: start: 20100601
  2. GLYBURIDE [Concomitant]
     Indication: DIABETES MELLITUS
     Dosage: 7.5 MG
     Route: 048
  3. FUROSEMIDE [Concomitant]
     Indication: SWELLING
     Route: 048

REACTIONS (5)
  - COUGH [None]
  - LACRIMATION INCREASED [None]
  - NASAL CONGESTION [None]
  - OROPHARYNGEAL PAIN [None]
  - RHINORRHOEA [None]
